FAERS Safety Report 8824031 (Version 3)
Quarter: 2012Q4

REPORT INFORMATION
  Report Type: 
  Country: CA (occurrence: CA)
  Receive Date: 20121003
  Receipt Date: 20121119
  Transmission Date: 20130627
  Serious: Yes (Hospitalization, Other)
  Sender: FDA-Public Use
  Company Number: CA-ROCHE-1120979

PATIENT
  Age: 73 Year
  Sex: Female

DRUGS (11)
  1. XOLAIR [Suspect]
     Indication: ASTHMA
     Route: 058
     Dates: start: 20120612
  2. PREDNISONE [Concomitant]
  3. ADVAIR [Concomitant]
  4. SALMETEROL XINAFOATE [Concomitant]
  5. VENTOLIN [Concomitant]
  6. PANTOLOC [Concomitant]
  7. ALENDRONATE [Concomitant]
  8. SINGULAIR [Concomitant]
  9. AERIUS [Concomitant]
  10. PENTASA [Concomitant]
  11. CELEXA [Concomitant]

REACTIONS (7)
  - Pulmonary embolism [Unknown]
  - Lung infection [Unknown]
  - Headache [Recovering/Resolving]
  - Vertebral wedging [Unknown]
  - Paraesthesia [Unknown]
  - Nervous system disorder [Unknown]
  - Bronchitis [Unknown]
